FAERS Safety Report 7860794-X (Version None)
Quarter: 2011Q4

REPORT INFORMATION
  Report Type: 
  Country: None (occurrence: None)
  Receive Date: 20111027
  Receipt Date: 20111013
  Transmission Date: 20120403
  Serious: Yes (Hospitalization)
  Sender: FDA-Public Use
  Company Number: US-BAYER-2011-032019

PATIENT
  Age: 39 Year
  Sex: Female
  Weight: 58.05 kg

DRUGS (11)
  1. CALCIUM CARBONATE [Concomitant]
     Dosage: 500 MG, BID
     Dates: start: 20050101
  2. DROSPIRENONE AND ETHINYL ESTRADIOL [Suspect]
     Indication: MENORRHAGIA
  3. YASMIN [Suspect]
     Indication: MENORRHAGIA
     Dosage: UNK
     Dates: start: 20031001, end: 20060901
  4. ASPIRIN [Concomitant]
     Dosage: 81 MG, QD
     Dates: start: 20050101
  5. YASMIN [Suspect]
     Dosage: UNK
     Dates: start: 20090201, end: 20090301
  6. FISH OIL [Concomitant]
     Dosage: 1200 MG, BID
     Dates: start: 20050101
  7. DROSPIRENONE AND ETHINYL ESTRADIOL [Suspect]
     Indication: CONTRACEPTION
     Dosage: UNK
     Dates: start: 20090309, end: 20090428
  8. NITROFURAL [Concomitant]
     Dosage: UNK
     Dates: start: 20080101, end: 20080201
  9. YASMIN [Suspect]
     Indication: CONTRACEPTION
     Dosage: UNK
     Dates: start: 20020901, end: 20030301
  10. LEXAPRO [Concomitant]
     Indication: STRESS
     Dosage: 10 MG, QD
     Dates: start: 20030101
  11. LEXAPRO [Concomitant]
     Indication: ANXIETY

REACTIONS (7)
  - ANXIETY [None]
  - INJURY [None]
  - FATIGUE [None]
  - PULMONARY EMBOLISM [None]
  - CHEST PAIN [None]
  - PAIN [None]
  - EMOTIONAL DISTRESS [None]
